FAERS Safety Report 8154257-4 (Version None)
Quarter: 2012Q1

REPORT INFORMATION
  Report Type: 
  Country: None (occurrence: None)
  Receive Date: 20120221
  Receipt Date: 20120215
  Transmission Date: 20120608
  Serious: Yes (Death, Hospitalization)
  Sender: FDA-Public Use
  Company Number: DE-PFIZER INC-2012040327

PATIENT
  Age: 60 Year
  Sex: Male
  Weight: 69 kg

DRUGS (1)
  1. TEMSIROLIMUS [Suspect]
     Indication: RENAL CANCER
     Dosage: 25 MG, UNK
     Route: 042
     Dates: start: 20111020, end: 20120127

REACTIONS (4)
  - DYSPNOEA [None]
  - NAUSEA [None]
  - DECREASED APPETITE [None]
  - WEIGHT DECREASED [None]
